FAERS Safety Report 7793212-0 (Version None)
Quarter: 2011Q4

REPORT INFORMATION
  Report Type: 
  Country: None (occurrence: None)
  Receive Date: 20111003
  Receipt Date: 20110919
  Transmission Date: 20120403
  Serious: Yes (Hospitalization, Other)
  Sender: FDA-Public Use
  Company Number: US-ELI_LILLY_AND_COMPANY-US201109006520

PATIENT
  Age: 34 Year
  Sex: Female

DRUGS (10)
  1. ORAL ANTIDIABETICS [Concomitant]
     Indication: TYPE 2 DIABETES MELLITUS
     Dosage: 60 U, EVERY HOUR
     Route: 042
  2. ORAL ANTIDIABETICS [Concomitant]
     Dosage: 120 U, EVERY HOUR
  3. ORAL ANTIDIABETICS [Concomitant]
     Dosage: 5 U, EVERY HOUR
  4. HUMULIN 70/30 [Suspect]
     Dosage: 150 U, EVERY HOUR
     Route: 042
  5. ORAL ANTIDIABETICS [Concomitant]
     Dosage: 30 U, EVERY HOUR
  6. HUMULIN 70/30 [Suspect]
     Indication: TYPE 2 DIABETES MELLITUS
     Route: 058
  7. ORAL ANTIDIABETICS [Concomitant]
     Dosage: 40 U, EVERY HOUR
  8. ORAL ANTIDIABETICS [Concomitant]
     Dosage: 4 U, EVERY HOUR
  9. ORAL ANTIDIABETICS [Concomitant]
     Dosage: 10 U, EVERY HOUR
  10. ORAL ANTIDIABETICS [Concomitant]
     Dosage: 20 U, QD
     Route: 058

REACTIONS (2)
  - DIABETIC KETOACIDOSIS [None]
  - ANTI-INSULIN ANTIBODY [None]
